FAERS Safety Report 11697199 (Version 1)
Quarter: 2015Q4

REPORT INFORMATION
  Report Type: Report from Study
  Country: CO (occurrence: CO)
  Receive Date: 20151104
  Receipt Date: 20151104
  Transmission Date: 20160304
  Serious: Yes (Other)
  Sender: FDA-Public Use
  Company Number: CO-REGENERON PHARMACEUTICALS, INC.-2015-13457

PATIENT

DRUGS (3)
  1. EYLEA [Suspect]
     Active Substance: AFLIBERCEPT
     Indication: RETINAL VEIN OCCLUSION
     Dosage: 1ST.
     Dates: start: 20141024, end: 20141024
  2. EYLEA [Suspect]
     Active Substance: AFLIBERCEPT
     Dosage: 3RD
     Dates: start: 20150315, end: 20150315
  3. EYLEA [Suspect]
     Active Substance: AFLIBERCEPT
     Dosage: 2ND
     Dates: start: 20150115, end: 20150115

REACTIONS (2)
  - Retinal haemorrhage [Unknown]
  - Product use issue [Unknown]

NARRATIVE: CASE EVENT DATE: 2015
